FAERS Safety Report 21655240 (Version 4)
Quarter: 2022Q4

REPORT INFORMATION
  Report Type: Spontaneous
  Country: US (occurrence: US)
  Receive Date: 20221129
  Receipt Date: 20221207
  Transmission Date: 20230113
  Serious: Yes (Death, Other)
  Sender: FDA-Public Use
  Company Number: US-UNITED THERAPEUTICS-UNT-2022-028740

PATIENT
  Age: 75 Year
  Sex: Male
  Weight: 53.061 kg

DRUGS (3)
  1. TYVASO [Suspect]
     Active Substance: TREPROSTINIL
     Indication: Pulmonary arterial hypertension
     Dosage: UNK
     Dates: start: 20221114, end: 202211
  2. TYVASO [Suspect]
     Active Substance: TREPROSTINIL
     Dosage: 18 ?G, QID
     Dates: start: 202211
  3. OFEV [Concomitant]
     Active Substance: NINTEDANIB
     Indication: Product used for unknown indication
     Dosage: UNK
     Route: 065

REACTIONS (11)
  - Cardiogenic shock [Fatal]
  - Anxiety [Unknown]
  - Cough [Unknown]
  - Oropharyngeal pain [Unknown]
  - Malaise [Unknown]
  - Headache [Unknown]
  - Abdominal pain [Unknown]
  - Feeling cold [Unknown]
  - Tremor [Unknown]
  - Pain [Unknown]
  - Drug intolerance [Unknown]

NARRATIVE: CASE EVENT DATE: 20221101
